FAERS Safety Report 10190470 (Version 1)
Quarter: 2014Q2

REPORT INFORMATION
  Report Type: Spontaneous
  Country: US (occurrence: US)
  Receive Date: 20140522
  Receipt Date: 20140522
  Transmission Date: 20141212
  Serious: No
  Sender: FDA-Public Use
  Company Number: US-SANOFI-AVENTIS-2013SA071999

PATIENT
  Sex: 0

DRUGS (2)
  1. ELOXATIN [Suspect]
     Route: 041
  2. ALL OTHER THERAPEUTIC PRODUCTS [Concomitant]
     Route: 065

REACTIONS (3)
  - Temperature intolerance [Unknown]
  - Fatigue [Unknown]
  - Neuropathy peripheral [Unknown]
